FAERS Safety Report 9902268 (Version 5)
Quarter: 2014Q3

REPORT INFORMATION
  Report Type: Spontaneous
  Country: CH (occurrence: CH)
  Receive Date: 20140217
  Receipt Date: 20140714
  Transmission Date: 20150326
  Serious: Yes (Disabling, Other)
  Sender: FDA-Public Use
  Company Number: CH-PFIZER INC-2014001390

PATIENT
  Age: 29 Year
  Sex: Female

DRUGS (3)
  1. SAYANA [Suspect]
     Active Substance: MEDROXYPROGESTERONE
     Dosage: 0.65 ML, EVERY 3 MONTHS
     Route: 058
     Dates: start: 201309, end: 20131218
  2. SAYANA [Suspect]
     Active Substance: MEDROXYPROGESTERONE
     Indication: CONTRACEPTION
     Dosage: 0.65 ML, EVERY 3 MONTHS
     Route: 058
     Dates: start: 20130701
  3. SAYANA [Suspect]
     Active Substance: MEDROXYPROGESTERONE
     Dosage: UNK
     Route: 058
     Dates: start: 20130923, end: 20130923

REACTIONS (5)
  - Injection site pain [Unknown]
  - Partial lipodystrophy [Not Recovered/Not Resolved]
  - Injection site nodule [Unknown]
  - Injection site atrophy [Not Recovered/Not Resolved]
  - Injection site haematoma [Unknown]

NARRATIVE: CASE EVENT DATE: 2013
